FAERS Safety Report 17564596 (Version 1)
Quarter: 2020Q1

REPORT INFORMATION
  Report Type: Report from Study
  Country: DE (occurrence: DE)
  Receive Date: 20200320
  Receipt Date: 20200320
  Transmission Date: 20200409
  Serious: Yes (Hospitalization, Other)
  Sender: FDA-Public Use
  Company Number: DE-ROCHE-2362638

PATIENT
  Sex: Female

DRUGS (7)
  1. BACLOFEN. [Concomitant]
     Active Substance: BACLOFEN
  2. OCREVUS [Suspect]
     Active Substance: OCRELIZUMAB
     Indication: RELAPSING-REMITTING MULTIPLE SCLEROSIS
     Route: 042
     Dates: start: 20181212
  3. MACROGOL [Concomitant]
     Active Substance: POLYETHYLENE GLYCOLS
  4. TOLPERISONE [Concomitant]
     Active Substance: TOLPERISONE
  5. LYRICA [Concomitant]
     Active Substance: PREGABALIN
  6. SPASMEX [TROSPIUM CHLORIDE] [Concomitant]
  7. ARLEVERT [Concomitant]
     Active Substance: CINNARIZINE\DIMENHYDRINATE

REACTIONS (2)
  - Pneumonia [Recovered/Resolved]
  - Haemorrhage [Recovered/Resolved]

NARRATIVE: CASE EVENT DATE: 20190501
